FAERS Safety Report 23139227 (Version 1)
Quarter: 2023Q4

REPORT INFORMATION
  Report Type: Spontaneous
  Country: US (occurrence: US)
  Receive Date: 20231102
  Receipt Date: 20231102
  Transmission Date: 20240110
  Serious: No
  Sender: FDA-Public Use
  Company Number: US-KOWA PHARMACEUTICALS-2023KOW00032

PATIENT
  Age: 68 Year
  Sex: Female

DRUGS (1)
  1. SEGLENTIS [Suspect]
     Active Substance: CELECOXIB\TRAMADOL HYDROCHLORIDE
     Indication: Pain
     Dosage: 2 TABLETS, 2X/DAY
     Route: 048
     Dates: start: 20230702, end: 2023

REACTIONS (3)
  - Formication [Unknown]
  - Pruritus [Unknown]
  - Rash pruritic [Unknown]

NARRATIVE: CASE EVENT DATE: 20230702
